FAERS Safety Report 5670069-5 (Version None)
Quarter: 2008Q1

REPORT INFORMATION
  Report Type: 
  Country: None (occurrence: None)
  Receive Date: 20080312
  Receipt Date: 20080117
  Transmission Date: 20080703
  Serious: Yes (Death)
  Sender: FDA-Public Use
  Company Number: 2008AL001104

PATIENT
  Age: 76 Year
  Sex: Female

DRUGS (9)
  1. TEMAZEPAM [Suspect]
     Indication: ANAESTHESIA
     Dosage: 10 MG; PO
     Route: 048
     Dates: start: 19990210, end: 19990210
  2. MIDAZOLAM HCL [Concomitant]
  3. PROPOFOL [Concomitant]
  4. SUBLIMAZE PRESERVATIVE FREE [Concomitant]
  5. SEVOFLURANE [Concomitant]
  6. NITROUS OXIDE [Concomitant]
  7. OXYGEN [Concomitant]
  8. ANTIEMETICS [Concomitant]
  9. ANTIBIOTICS [Concomitant]

REACTIONS (4)
  - CIRCULATORY COLLAPSE [None]
  - HEART RATE INCREASED [None]
  - PCO2 DECREASED [None]
  - PROCEDURAL COMPLICATION [None]
